FAERS Safety Report 5807201-6 (Version None)
Quarter: 2008Q3

REPORT INFORMATION
  Report Type: 
  Country: None (occurrence: None)
  Receive Date: 20080711
  Receipt Date: 20080704
  Transmission Date: 20090109
  Serious: Yes (Life-Threatening, Hospitalization)
  Sender: FDA-Public Use
  Company Number: B0525099A

PATIENT
  Sex: Male
  Weight: 80 kg

DRUGS (2)
  1. IMIGRAN [Suspect]
     Indication: CLUSTER HEADACHE
     Dosage: 6MG AS REQUIRED
     Route: 058
     Dates: start: 20060101, end: 20080101
  2. VERAPAMIL [Concomitant]
     Indication: CLUSTER HEADACHE
     Dosage: 240MG PER DAY
     Route: 048
     Dates: start: 20071201, end: 20080501

REACTIONS (2)
  - ARTERY DISSECTION [None]
  - CEREBROVASCULAR ACCIDENT [None]
